FAERS Safety Report 16363153 (Version 3)
Quarter: 2020Q4

REPORT INFORMATION
  Report Type: Spontaneous
  Country: JP (occurrence: JP)
  Receive Date: 20190528
  Receipt Date: 20201204
  Transmission Date: 20210113
  Serious: Yes (Hospitalization)
  Sender: FDA-Public Use
  Company Number: JP-ELI_LILLY_AND_COMPANY-JP201905008837

PATIENT
  Age: 76 Year
  Sex: Male
  Weight: 58 kg

DRUGS (8)
  1. FEBURIC [Concomitant]
     Active Substance: FEBUXOSTAT
     Dosage: 10 DOSAGE FORM
  2. ARGAMATE [Concomitant]
     Active Substance: CALCIUM POLYSTYRENE SULFONATE
     Dosage: 2 DOSAGE FORM
  3. TRULICITY [Suspect]
     Active Substance: DULAGLUTIDE
     Indication: TYPE 2 DIABETES MELLITUS
     Dosage: 0.75 MG, WEEKLY (1/W)
     Route: 058
     Dates: start: 20171207, end: 20180104
  4. NIFEDIPINE. [Concomitant]
     Active Substance: NIFEDIPINE
     Dosage: 20 DOSAGE FORM
  5. PLETAAL [Concomitant]
     Active Substance: CILOSTAZOL
     Dosage: 2 DOSAGE FORM
  6. EDIROL [Suspect]
     Active Substance: ELDECALCITOL
     Indication: OSTEOPOROSIS
     Dosage: UNK
     Route: 048
  7. ARTIST [Concomitant]
     Active Substance: CARVEDILOL
     Dosage: 1.5 DOSAGE FORM
  8. FUROSEMIDE. [Concomitant]
     Active Substance: FUROSEMIDE

REACTIONS (4)
  - Renal disorder [Recovering/Resolving]
  - Hypercalcaemia [Recovering/Resolving]
  - Decreased appetite [Recovered/Resolved]
  - Dehydration [Recovering/Resolving]

NARRATIVE: CASE EVENT DATE: 20180104
